FAERS Safety Report 15325825 (Version 1)
Quarter: 2018Q3

REPORT INFORMATION
  Report Type: Spontaneous
  Country: US (occurrence: US)
  Receive Date: 20180822
  Receipt Date: 20180822
  Transmission Date: 20181010
  Serious: No
  Sender: FDA-Public Use
  Company Number: None

PATIENT
  Age: 65 Year
  Sex: Female
  Weight: 69.75 kg

DRUGS (7)
  1. GENERIC FOR MACROBID?NITORFURANATOIN MONO, 100MG CAP TWICE PER DAY [Suspect]
     Active Substance: NITROFURANTOIN\NITROFURANTOIN MONOHYDRATE
     Indication: URINARY TRACT INFECTION
     Dosage: ?          QUANTITY:1 CAPSULE(S);?
     Route: 048
     Dates: start: 20180811, end: 20180813
  2. GENERIC METFORMIN [Concomitant]
     Active Substance: METFORMIN HYDROCHLORIDE
  3. VITAMIN B [Concomitant]
     Active Substance: VITAMIN B
  4. VITAMIN D [Concomitant]
     Active Substance: CHOLECALCIFEROL
  5. VITAMIN C [Concomitant]
     Active Substance: ASCORBIC ACID
  6. VITAMIN E [Concomitant]
     Active Substance: .ALPHA.-TOCOPHEROL
  7. ARMOUR THYROID [Concomitant]
     Active Substance: THYROID, PORCINE

REACTIONS (11)
  - Myalgia [None]
  - Arthralgia [None]
  - Fatigue [None]
  - Malaise [None]
  - Rash [None]
  - Pyrexia [None]
  - Chest discomfort [None]
  - Wheezing [None]
  - Documented hypersensitivity to administered product [None]
  - Headache [None]
  - Dyspnoea [None]

NARRATIVE: CASE EVENT DATE: 20180811
